FAERS Safety Report 25944458 (Version 1)
Quarter: 2025Q4

REPORT INFORMATION
  Report Type: Spontaneous
  Country: US (occurrence: US)
  Receive Date: 20251021
  Receipt Date: 20251021
  Transmission Date: 20260117
  Serious: No
  Sender: SOLENO THERAPEUTICS
  Company Number: US-SOLENO THERAPEUTICS, INC.-SOL2025000371

PATIENT
  Sex: Female
  Weight: 80.272 kg

DRUGS (2)
  1. VYKAT XR [Suspect]
     Active Substance: DIAZOXIDE CHOLINE
     Indication: Product used for unknown indication
     Dosage: UNK
     Route: 065
  2. VYKAT XR [Suspect]
     Active Substance: DIAZOXIDE CHOLINE
     Dosage: 300 MILLIGRAM
     Route: 065

REACTIONS (2)
  - Swelling [Unknown]
  - Weight increased [Unknown]
